FAERS Safety Report 20006102 (Version 1)
Quarter: 2021Q4

REPORT INFORMATION
  Report Type: Spontaneous
  Country: US (occurrence: US)
  Receive Date: 20211028
  Receipt Date: 20211028
  Transmission Date: 20220303
  Serious: Yes (Death, Other)
  Sender: FDA-Public Use
  Company Number: US-SA-2021SA354106

PATIENT
  Age: 49 Year
  Sex: Male

DRUGS (4)
  1. ALEMTUZUMAB [Suspect]
     Active Substance: ALEMTUZUMAB
     Indication: Prophylaxis against graft versus host disease
     Dosage: UNK
     Route: 058
  2. FLUDARABINE PHOSPHATE [Suspect]
     Active Substance: FLUDARABINE PHOSPHATE
     Indication: T-cell lymphoma
  3. MELPHALAN [Suspect]
     Active Substance: MELPHALAN
     Indication: T-cell lymphoma
  4. TACROLIMUS [Suspect]
     Active Substance: TACROLIMUS
     Indication: Prophylaxis against graft versus host disease

REACTIONS (8)
  - BK virus infection [Fatal]
  - Cystitis viral [Fatal]
  - Adenovirus infection [Fatal]
  - Viraemia [Fatal]
  - Pyelonephritis [Fatal]
  - Urinary tract infection viral [Fatal]
  - Haematuria [Fatal]
  - Off label use [Fatal]
